FAERS Safety Report 14946208 (Version 3)
Quarter: 2020Q2

REPORT INFORMATION
  Report Type: Spontaneous
  Country: US (occurrence: US)
  Receive Date: 20180529
  Receipt Date: 20200624
  Transmission Date: 20200713
  Serious: Yes (Hospitalization, Other)
  Sender: FDA-Public Use
  Company Number: US-JAZZ-JPI-P-028913

PATIENT
  Age: 24 Year
  Sex: Female

DRUGS (4)
  1. XYREM [Suspect]
     Active Substance: SODIUM OXYBATE
     Indication: NARCOLEPSY
     Dosage: 2.25 GRAM, BID
     Route: 048
     Dates: start: 20070402
  2. XYREM [Suspect]
     Active Substance: SODIUM OXYBATE
     Indication: CATAPLEXY
     Dosage: SINGLE (UNSPECIFIED DOSE)
     Route: 048
  3. XYREM [Suspect]
     Active Substance: SODIUM OXYBATE
     Dosage: 4.5 G, TID
     Route: 048
     Dates: start: 20121030
  4. MARIJUANA [Suspect]
     Active Substance: CANNABIS SATIVA SUBSP. INDICA TOP
     Indication: PRODUCT USED FOR UNKNOWN INDICATION

REACTIONS (10)
  - Confusional state [Unknown]
  - Drug dependence [Unknown]
  - Alcohol abuse [Unknown]
  - Memory impairment [Unknown]
  - Drug abuse [Unknown]
  - Depression suicidal [Recovering/Resolving]
  - Urinary incontinence [Unknown]
  - Overdose [Unknown]
  - Intentional product use issue [Unknown]
  - Anal incontinence [Unknown]

NARRATIVE: CASE EVENT DATE: 201212
